FAERS Safety Report 5367902-3 (Version None)
Quarter: 2007Q2

REPORT INFORMATION
  Report Type: 
  Country: None (occurrence: None)
  Receive Date: 20070622
  Receipt Date: 20070614
  Transmission Date: 20071010
  Serious: Yes (Disabling, Other)
  Sender: FDA-Public Use
  Company Number: DE-BOEHRINGER INGELHEIM PHARMACEUTICALS, INC.-2007-DE-01656DE

PATIENT
  Sex: Male

DRUGS (8)
  1. ALNA OCAS [Suspect]
     Indication: BENIGN PROSTATIC HYPERPLASIA
     Route: 048
     Dates: start: 20050801, end: 20060101
  2. COTRIM DS [Concomitant]
     Dates: start: 20050101, end: 20060101
  3. ASPIRIN [Concomitant]
     Dates: start: 20050101
  4. LISI PUREN [Concomitant]
     Dates: start: 20050101, end: 20050101
  5. VIAGRA [Concomitant]
     Dates: start: 20050101, end: 20050101
  6. LISINOPRIL-Q [Concomitant]
     Dates: start: 20060101
  7. AMLO-Q [Concomitant]
     Dates: start: 20060101, end: 20060101
  8. AMLODIPINE [Concomitant]
     Dates: start: 20060101, end: 20060101

REACTIONS (5)
  - ANORGASMIA [None]
  - DRUG INEFFECTIVE [None]
  - EJACULATION FAILURE [None]
  - ERECTILE DYSFUNCTION [None]
  - TRANSURETHRAL PROSTATECTOMY [None]
